FAERS Safety Report 10200288 (Version 1)
Quarter: 2014Q2

REPORT INFORMATION
  Report Type: Spontaneous
  Country: JP (occurrence: JP)
  Receive Date: 20140527
  Receipt Date: 20140527
  Transmission Date: 20141212
  Serious: Yes (Hospitalization)
  Sender: FDA-Public Use
  Company Number: JP-UCBSA-121949

PATIENT
  Age: 90 Year
  Sex: Female

DRUGS (9)
  1. NEUPRO [Suspect]
     Indication: PARKINSON^S DISEASE
     Route: 062
  2. CYMBALTA [Suspect]
     Indication: PARKINSON^S DISEASE
     Route: 048
  3. LEVODOPA/BENSERAZIDE HYDROCHLORIDE [Concomitant]
  4. CARBAZOCHROME SODIUM SULFONATE HYDRATE [Concomitant]
  5. TICLOPIDINE HYDROCHLORIDE [Concomitant]
  6. EZETIMIBE [Concomitant]
  7. SODIUM FERROUS CITRATE [Concomitant]
  8. ROSUVASTATIN CALCIUM [Concomitant]
     Dosage: UNKNOWN
  9. MAGNESIUM OXIDE [Concomitant]

REACTIONS (1)
  - Hyponatraemia [Unknown]
